FAERS Safety Report 10431611 (Version 2)
Quarter: 2015Q1

REPORT INFORMATION
  Report Type: Report from Study
  Country: SE (occurrence: SE)
  Receive Date: 20140904
  Receipt Date: 20150224
  Transmission Date: 20150720
  Serious: Yes (Hospitalization)
  Sender: FDA-Public Use
  Company Number: SE-ABBVIE-14P-150-1278248-00

PATIENT
  Sex: Female

DRUGS (15)
  1. HYDROCHLOROTHIAZIDE. [Concomitant]
     Active Substance: HYDROCHLOROTHIAZIDE
     Indication: DIURETIC THERAPY
     Dates: start: 20081209, end: 20091209
  2. TOBRAMYCIN. [Concomitant]
     Active Substance: TOBRAMYCIN
     Indication: INFECTION
     Dosage: ONCE
     Dates: start: 20130214, end: 20130215
  3. BENSYLPENICILLIN [Concomitant]
     Active Substance: PENICILLIN G
     Indication: INFECTION
     Dates: start: 20130214, end: 20130226
  4. HUMIRA [Suspect]
     Active Substance: ADALIMUMAB
     Indication: CROHN^S DISEASE
     Dosage: BASELINE
     Route: 058
     Dates: start: 20080521, end: 20080521
  5. CITALOPRAM [Concomitant]
     Active Substance: CITALOPRAM HYDROBROMIDE
     Indication: DEPRESSION
  6. METRONIDAZOL [Concomitant]
     Active Substance: METRONIDAZOLE
     Indication: PROPHYLAXIS
     Dates: start: 20140211, end: 20140416
  7. IBUPROFAN [Concomitant]
     Indication: ABDOMINAL PAIN
     Dates: start: 2002
  8. HUMIRA [Suspect]
     Active Substance: ADALIMUMAB
     Route: 058
     Dates: start: 20140211
  9. PREDNISONE. [Concomitant]
     Active Substance: PREDNISONE
     Indication: CROHN^S DISEASE
  10. PREDNISONE. [Concomitant]
     Active Substance: PREDNISONE
     Indication: INFLAMMATION
     Dosage: SPECIFY REDUCED DOSE WITH 5 MG EVERY WEEK UNTIL 0
     Dates: start: 20080131, end: 20080508
  11. SUMATRIPTAN. [Concomitant]
     Active Substance: SUMATRIPTAN
     Indication: MIGRAINE
     Dates: start: 2000
  12. HUMIRA [Suspect]
     Active Substance: ADALIMUMAB
     Dosage: WEEK 2
     Route: 058
     Dates: end: 20130605
  13. B-VITAMINS [Concomitant]
     Indication: VITAMIN SUPPLEMENTATION
     Dates: start: 1999
  14. ZANTAC [Concomitant]
     Active Substance: RANITIDINE HYDROCHLORIDE
     Indication: IMMUNOSUPPRESSION
     Dates: start: 20080131, end: 20100420
  15. AZATHIOPRINE. [Concomitant]
     Active Substance: AZATHIOPRINE
     Indication: CROHN^S DISEASE

REACTIONS (1)
  - Colostomy [Unknown]
